FAERS Safety Report 6038610-0 (Version None)
Quarter: 2009Q1

REPORT INFORMATION
  Report Type: 
  Country: None (occurrence: None)
  Receive Date: 20090113
  Receipt Date: 20080915
  Transmission Date: 20090719
  Serious: No
  Sender: FDA-Public Use
  Company Number: 2008BM000187

PATIENT
  Age: 10 Year
  Sex: Female
  Weight: 24.9478 kg

DRUGS (2)
  1. KUVAN [Suspect]
     Indication: PHENYLKETONURIA
     Dosage: 500 MG;QD;PO
     Route: 048
     Dates: start: 20080407
  2. MULTI-VITAMINS [Concomitant]

REACTIONS (4)
  - CRYING [None]
  - HEADACHE [None]
  - MIGRAINE [None]
  - VOMITING [None]
